FAERS Safety Report 25470892 (Version 1)
Quarter: 2025Q2

REPORT INFORMATION
  Report Type: Spontaneous
  Country: US (occurrence: US)
  Receive Date: 20250624
  Receipt Date: 20250624
  Transmission Date: 20250717
  Serious: No
  Sender: SANOFI AVENTIS
  Company Number: US-SANOFI-02561329

PATIENT
  Sex: Male

DRUGS (2)
  1. MULTAQ [Suspect]
     Active Substance: DRONEDARONE
     Dosage: 1 DF, BID
     Route: 065
     Dates: start: 202402
  2. MULTAQ [Suspect]
     Active Substance: DRONEDARONE
     Dosage: 0.5 DF, BID

REACTIONS (1)
  - Off label use [Unknown]
